FAERS Safety Report 9820783 (Version 1)
Quarter: 2013Q4

REPORT INFORMATION
  Report Type: Spontaneous
  Country: US (occurrence: None)
  Receive Date: 20131028
  Receipt Date: 20131028
  Transmission Date: 20140711
  Serious: Yes (Other)
  Sender: FDA-Public Use
  Company Number: 2013US001432

PATIENT
  Age: 40 Year
  Sex: Female

DRUGS (8)
  1. ICLUSIG [Suspect]
     Indication: CHRONIC MYELOID LEUKAEMIA
     Route: 048
     Dates: start: 20130129
  2. EPOETIN ALFA (EPOETIN ALFA) [Concomitant]
  3. RANITIDINE HYDROCHLORIDE (RANITIDINE HYDROCHLORIDE) TABLET [Concomitant]
  4. METHYLPREDNISOLONE (METHYLPREDNISOLONE) TABLET [Concomitant]
  5. VITAMIN D3 (VITAMIN D3) TABLET [Concomitant]
  6. PREDNISOLONE ACETATE (PREDNISOLONE ACETATE) [Concomitant]
  7. COLCRYS (COLCHICINE) TABLET [Concomitant]
  8. ALLOPURINOL (ALLOPURINOL) TABLET [Concomitant]

REACTIONS (1)
  - Neuropathy peripheral [None]
